FAERS Safety Report 13026211 (Version 1)
Quarter: 2016Q4

REPORT INFORMATION
  Report Type: Report from Study
  Country: ZA (occurrence: ZA)
  Receive Date: 20161214
  Receipt Date: 20161214
  Transmission Date: 20170207
  Serious: Yes (Death, Other)
  Sender: FDA-Public Use
  Company Number: ZA-AMGEN-ZAFSL2016174753

PATIENT
  Age: 53 Year
  Sex: Male

DRUGS (1)
  1. ARANESP [Suspect]
     Active Substance: DARBEPOETIN ALFA
     Indication: PRODUCT USED FOR UNKNOWN INDICATION
     Dosage: 50 MUG, QWK
     Route: 058
     Dates: start: 20110501

REACTIONS (2)
  - Death [Fatal]
  - Complication associated with device [Unknown]

NARRATIVE: CASE EVENT DATE: 20161207
